FAERS Safety Report 5386081-X (Version None)
Quarter: 2007Q3

REPORT INFORMATION
  Report Type: 
  Country: None (occurrence: None)
  Receive Date: 20070710
  Receipt Date: 20070625
  Transmission Date: 20080115
  Serious: Yes (Other)
  Sender: FDA-Public Use
  Company Number: 2007RR-08401

PATIENT
  Age: 56 Year
  Sex: Female

DRUGS (2)
  1. ROXITHROMYCIN (ROXITHROMYCIN) UNKNOWN [Suspect]
     Indication: SUBCUTANEOUS NODULE
     Dosage: 300 MG, UNK, ORAL
     Route: 048
  2. CLARITHROMYCIN [Suspect]
     Indication: SUBCUTANEOUS NODULE
     Dosage: 400 MG, UNK

REACTIONS (1)
  - DRUG INEFFECTIVE [None]
